FAERS Safety Report 13782629 (Version 1)
Quarter: 2017Q3

REPORT INFORMATION
  Report Type: Report from Study
  Country: US (occurrence: US)
  Receive Date: 20170724
  Receipt Date: 20170724
  Transmission Date: 20171127
  Serious: No
  Sender: FDA-Public Use
  Company Number: US-IPSEN BIOPHARMACEUTICALS, INC.-2016-08500

PATIENT
  Sex: Male
  Weight: 95.25 kg

DRUGS (2)
  1. SOMATULINE DEPOT [Suspect]
     Active Substance: LANREOTIDE ACETATE
     Indication: PRODUCT USE IN UNAPPROVED INDICATION
     Dosage: 90 MG
     Route: 058
     Dates: start: 2014
  2. SOMATULINE DEPOT [Suspect]
     Active Substance: LANREOTIDE ACETATE
     Indication: BRAIN NEOPLASM
     Dosage: 120 MG
     Route: 058

REACTIONS (9)
  - Nausea [Unknown]
  - Fatigue [Unknown]
  - Product storage error [Unknown]
  - Drug administered at inappropriate site [Unknown]
  - Abdominal pain upper [Recovering/Resolving]
  - Asthenia [Unknown]
  - Headache [Unknown]
  - Drug dose omission [Unknown]
  - Feeling abnormal [Unknown]

NARRATIVE: CASE EVENT DATE: 2016
